FAERS Safety Report 4369756-0 (Version None)
Quarter: 2004Q2

REPORT INFORMATION
  Report Type: 
  Country: None (occurrence: None)
  Receive Date: 20040528
  Receipt Date: 20040518
  Transmission Date: 20050107
  Serious: Yes (Hospitalization)
  Sender: FDA-Public Use
  Company Number: US-AMGEN-US039529

PATIENT
  Age: 62 Year
  Sex: Female

DRUGS (7)
  1. ENBREL [Suspect]
     Indication: RHEUMATOID ARTHRITIS
     Dosage: 25 MG, TWICE WEEKLY, SC
     Route: 058
     Dates: start: 20011026, end: 20030226
  2. LEFLUNOMIDE [Suspect]
     Dosage: 20 MG, DAILY, PO
     Route: 048
     Dates: start: 19990601, end: 20030226
  3. PREDNISONE [Concomitant]
  4. ALENDRONATE SODIUM [Concomitant]
  5. DEXTROPROPOXYPHENE NAPSILATE W/ACETOMINOPHEN [Concomitant]
  6. IBUPROFEN [Concomitant]
  7. CETIRIZINE HCL [Concomitant]

REACTIONS (9)
  - ARTERIAL STENOSIS [None]
  - ATHEROSCLEROSIS [None]
  - FINGER AMPUTATION [None]
  - GANGRENE [None]
  - ISCHAEMIA [None]
  - LEG AMPUTATION [None]
  - LOCALISED INFECTION [None]
  - PERIPHERAL VASCULAR DISORDER [None]
  - VASCULITIS [None]
